FAERS Safety Report 5557709-6 (Version None)
Quarter: 2007Q4

REPORT INFORMATION
  Report Type: 
  Country: None (occurrence: None)
  Receive Date: 20071214
  Receipt Date: 20071205
  Transmission Date: 20080405
  Serious: Yes (Other)
  Sender: FDA-Public Use
  Company Number: PHBS2007JP20550

PATIENT
  Age: 76 Year
  Sex: Female

DRUGS (2)
  1. CYCLOSPORINE [Suspect]
     Indication: APLASTIC ANAEMIA
     Route: 065
  2. BLOOD TRANSFUSION, AUXILIARY PRODUCTS [Concomitant]
     Indication: APLASTIC ANAEMIA
     Dosage: 1/WEEK

REACTIONS (5)
  - ABDOMINAL PAIN UPPER [None]
  - GASTRIC ANTRAL VASCULAR ECTASIA [None]
  - GASTROINTESTINAL HAEMORRHAGE [None]
  - HYPERKALAEMIA [None]
  - THERAPEUTIC PROCEDURE [None]
